FAERS Safety Report 4389006-9 (Version None)
Quarter: 2004Q2

REPORT INFORMATION
  Report Type: 
  Country: None (occurrence: None)
  Receive Date: 20040624
  Receipt Date: 20040615
  Transmission Date: 20050107
  Serious: Yes (Other)
  Sender: FDA-Public Use
  Company Number: HQWYE504217JUN04

PATIENT
  Age: 3 Month
  Sex: Female
  Weight: 4.7 kg

DRUGS (2)
  1. RAPAMUNE [Suspect]
     Indication: PROPHYLAXIS AGAINST TRANSPLANT REJECTION
     Dosage: 0.2 MG; DOSE FREQUENCY NOT SPECIFIED, ORAL
     Route: 048
     Dates: start: 20040605
  2. UNSPECIFIED ANTIBIOTIC [Concomitant]

REACTIONS (1)
  - SIMPLE PARTIAL SEIZURES [None]
